FAERS Safety Report 7998688-1 (Version None)
Quarter: 2011Q4

REPORT INFORMATION
  Report Type: 
  Country: None (occurrence: None)
  Receive Date: 20111221
  Receipt Date: 20111212
  Transmission Date: 20120403
  Serious: Yes (Hospitalization, Other)
  Sender: FDA-Public Use
  Company Number: US-BAYER-2011-044887

PATIENT
  Age: 29 Year
  Sex: Female
  Weight: 124.26 kg

DRUGS (2)
  1. YASMIN [Suspect]
     Indication: PREMENSTRUAL SYNDROME
     Dosage: UNK
     Dates: start: 20060901, end: 20061201
  2. YASMIN [Suspect]
     Indication: CONTRACEPTION
     Dosage: UNK
     Dates: start: 20041101, end: 20050701

REACTIONS (11)
  - EMOTIONAL DISTRESS [None]
  - MUSCLE TWITCHING [None]
  - PAIN [None]
  - HEADACHE [None]
  - GENERAL PHYSICAL HEALTH DETERIORATION [None]
  - PARAESTHESIA [None]
  - ANXIETY [None]
  - DIZZINESS [None]
  - CEREBROVASCULAR ACCIDENT [None]
  - PARTIAL SEIZURES [None]
  - MENTAL DISORDER [None]
